FAERS Safety Report 23193620 (Version 1)
Quarter: 2023Q4

REPORT INFORMATION
  Report Type: Spontaneous
  Country: US (occurrence: US)
  Receive Date: 20231116
  Receipt Date: 20231116
  Transmission Date: 20240109
  Serious: No
  Sender: FDA-Public Use
  Company Number: US-Teikoku Pharma USA-TPU2023-00557

PATIENT
  Age: 80 Year
  Sex: Female

DRUGS (1)
  1. LIDODERM [Suspect]
     Active Substance: LIDOCAINE
     Indication: Back pain
     Route: 061

REACTIONS (2)
  - Product dose omission issue [Unknown]
  - Drug ineffective for unapproved indication [Unknown]
